FAERS Safety Report 5086774-8 (Version None)
Quarter: 2006Q3

REPORT INFORMATION
  Report Type: 
  Country: None (occurrence: None)
  Receive Date: 20060823
  Receipt Date: 20060623
  Transmission Date: 20061208
  Serious: Yes (Hospitalization)
  Sender: FDA-Public Use
  Company Number: 2006UW13316

PATIENT
  Age: 41 Year
  Sex: Female
  Weight: 46.1 kg

DRUGS (8)
  1. IRESSA [Suspect]
     Indication: BREAST CANCER METASTATIC
     Route: 048
     Dates: start: 20050819, end: 20060618
  2. XELODA [Suspect]
     Indication: BREAST CANCER METASTATIC
     Dates: start: 20050819, end: 20060618
  3. POTASSIUM CHLORIDE [Concomitant]
     Route: 048
  4. PEPCID [Concomitant]
  5. TYLENOL [Concomitant]
  6. LOMOTIL [Concomitant]
  7. XANAX [Concomitant]
  8. ROCEPHIN [Concomitant]

REACTIONS (5)
  - ANAEMIA [None]
  - HYPOKALAEMIA [None]
  - HYPONATRAEMIA [None]
  - PANCREATITIS ACUTE [None]
  - RENAL FAILURE ACUTE [None]
